FAERS Safety Report 7348545-9 (Version None)
Quarter: 2011Q1

REPORT INFORMATION
  Report Type: 
  Country: None (occurrence: None)
  Receive Date: 20110314
  Receipt Date: 20110307
  Transmission Date: 20110831
  Serious: Yes (Hospitalization)
  Sender: FDA-Public Use
  Company Number: US-BIOGENIDEC-2011BI007963

PATIENT
  Sex: Female

DRUGS (1)
  1. TYSABRI [Suspect]
     Indication: MULTIPLE SCLEROSIS
     Route: 042
     Dates: start: 20090814

REACTIONS (7)
  - URINARY TRACT INFECTION [None]
  - SEPSIS [None]
  - RECTAL HAEMORRHAGE [None]
  - OEDEMA PERIPHERAL [None]
  - PNEUMONIA [None]
  - GASTROINTESTINAL STOMA COMPLICATION [None]
  - SEPTIC SHOCK [None]
